FAERS Safety Report 5068703-6 (Version None)
Quarter: 2006Q3

REPORT INFORMATION
  Report Type: 
  Country: None (occurrence: None)
  Receive Date: 20060802
  Receipt Date: 20060221
  Transmission Date: 20061208
  Serious: No
  Sender: FDA-Public Use
  Company Number: US-BRISTOL-MYERS SQUIBB COMPANY-13290234

PATIENT
  Age: 18 Year
  Sex: Male

DRUGS (2)
  1. COUMADIN [Suspect]
  2. LEXAPRO [Interacting]
     Dates: start: 20060131

REACTIONS (2)
  - DRUG INTERACTION [None]
  - INTERNATIONAL NORMALISED RATIO INCREASED [None]
